FAERS Safety Report 22218819 (Version 3)
Quarter: 2023Q2

REPORT INFORMATION
  Report Type: Report from Study
  Country: PT (occurrence: PT)
  Receive Date: 20230417
  Receipt Date: 20230606
  Transmission Date: 20230722
  Serious: Yes (Other)
  Sender: FDA-Public Use
  Company Number: PT-ABBVIE-4724687

PATIENT
  Age: 37 Year
  Sex: Female

DRUGS (10)
  1. HUMIRA [Suspect]
     Active Substance: ADALIMUMAB
     Indication: Ankylosing spondylitis
     Dosage: FORM STRENGTH-40 MG ?LOADING DOSE-1
     Route: 058
     Dates: start: 20171114
  2. HUMIRA [Suspect]
     Active Substance: ADALIMUMAB
     Route: 058
     Dates: start: 20170901
  3. HUMIRA [Suspect]
     Active Substance: ADALIMUMAB
     Route: 058
     Dates: start: 20170804, end: 20170804
  4. HUMIRA [Suspect]
     Active Substance: ADALIMUMAB
     Dosage: FORM STRENGTH-40 MG
     Route: 058
     Dates: start: 20170818, end: 20170818
  5. HUMIRA [Suspect]
     Active Substance: ADALIMUMAB
     Dosage: FORM STRENGTH-40 MG?LOADING DOSE 2
     Route: 058
     Dates: start: 20190605, end: 202304
  6. HUMIRA [Suspect]
     Active Substance: ADALIMUMAB
     Route: 058
     Dates: start: 202305
  7. HUMIRA [Suspect]
     Active Substance: ADALIMUMAB
     Route: 058
     Dates: start: 202304, end: 202305
  8. OXYTOCIN [Concomitant]
     Active Substance: OXYTOCIN
     Indication: Vaginal haemorrhage
     Dates: start: 20230416, end: 20230416
  9. FOLIC ACID [Suspect]
     Active Substance: FOLIC ACID
     Indication: Anaemia
     Route: 065
     Dates: start: 202304, end: 202305
  10. IRON [Suspect]
     Active Substance: IRON
     Indication: Anaemia
     Route: 065
     Dates: start: 202304, end: 202305

REACTIONS (7)
  - Abortion spontaneous [Recovered/Resolved]
  - Pain [Recovered/Resolved]
  - Maternal exposure during pregnancy [Unknown]
  - Haemorrhage in pregnancy [Recovered/Resolved]
  - Constipation [Not Recovered/Not Resolved]
  - Foetal death [Unknown]
  - Anaemia [Recovered/Resolved]

NARRATIVE: CASE EVENT DATE: 20230101
